FAERS Safety Report 24237908 (Version 1)
Quarter: 2024Q3

REPORT INFORMATION
  Report Type: Spontaneous
  Country: US (occurrence: US)
  Receive Date: 20240822
  Receipt Date: 20240822
  Transmission Date: 20241017
  Serious: No
  Sender: HIKMA
  Company Number: US-HIKMA PHARMACEUTICALS USA INC.-US-H14001-24-00163

PATIENT
  Age: 79 Year
  Sex: Female

DRUGS (7)
  1. ADCIRCA [Suspect]
     Active Substance: TADALAFIL
     Indication: Pulmonary arterial hypertension
     Dosage: 40 MILLIGRAM, QD
     Route: 048
     Dates: start: 202103
  2. ATIVAN [Suspect]
     Active Substance: LORAZEPAM
     Indication: Insomnia
     Dosage: UNK
     Route: 065
  3. TREPROSTINIL [Suspect]
     Active Substance: TREPROSTINIL
     Indication: Pulmonary arterial hypertension
     Dosage: 32 MICROGRAM, QID
     Route: 055
     Dates: start: 2023, end: 2023
  4. TREPROSTINIL [Suspect]
     Active Substance: TREPROSTINIL
     Dosage: 48 MICROGRAM, QID
     Route: 055
     Dates: start: 20231221
  5. TREPROSTINIL [Suspect]
     Active Substance: TREPROSTINIL
     Dosage: UNK UNK, QID
     Route: 055
     Dates: start: 202311
  6. TYVASO DPI [Suspect]
     Active Substance: TREPROSTINIL
     Indication: Pulmonary arterial hypertension
     Dosage: UNK
     Route: 055
     Dates: start: 202311
  7. AMBRISENTAN [Concomitant]
     Active Substance: AMBRISENTAN
     Indication: Product used for unknown indication
     Dosage: UNK
     Route: 065

REACTIONS (6)
  - Cough [Unknown]
  - Dyspnoea exertional [Unknown]
  - Retching [Unknown]
  - Nausea [Unknown]
  - Vomiting [Unknown]
  - Expired product administered [Unknown]

NARRATIVE: CASE EVENT DATE: 20231219
